FAERS Safety Report 18517654 (Version 2)
Quarter: 2020Q4

REPORT INFORMATION
  Report Type: Other
  Country: IL (occurrence: IL)
  Receive Date: 20201118
  Receipt Date: 20201126
  Transmission Date: 20210114
  Serious: Yes (Hospitalization)
  Sender: FDA-Public Use
  Company Number: IL-ROCHE-2711888

PATIENT
  Age: 51 Year
  Sex: Male

DRUGS (2)
  1. IMURAN [Concomitant]
     Active Substance: AZATHIOPRINE
  2. OCREVUS [Suspect]
     Active Substance: OCRELIZUMAB
     Indication: PRIMARY PROGRESSIVE MULTIPLE SCLEROSIS
     Route: 065
     Dates: start: 20180307

REACTIONS (1)
  - Coronavirus test positive [Not Recovered/Not Resolved]

NARRATIVE: CASE EVENT DATE: 20201018
